FAERS Safety Report 8229623-9 (Version None)
Quarter: 2012Q1

REPORT INFORMATION
  Report Type: 
  Country: None (occurrence: None)
  Receive Date: 20120322
  Receipt Date: 20120312
  Transmission Date: 20120608
  Serious: Yes (Hospitalization, Disabling)
  Sender: FDA-Public Use
  Company Number: PHHY2012AT015108

PATIENT
  Sex: Female
  Weight: 82 kg

DRUGS (4)
  1. OLMESARTAN MEDOXOMIL [Concomitant]
     Indication: HYPERTENSION
     Dosage: 20 MG, TWICE , UNK
  2. OLEOVIT D3 [Concomitant]
     Dosage: UNK UKN, ONCE WEEKLY
  3. ZOLEDRONOC ACID [Suspect]
     Indication: OSTEOPOROSIS
     Dosage: UNK UKN, UNK
     Route: 042
     Dates: start: 20120221
  4. PANTOPRAZOLE SODIUM [Concomitant]
     Indication: GASTRIC DISORDER
     Dosage: 20 MG, TWICE DAILY

REACTIONS (19)
  - HYPERTENSIVE CRISIS [None]
  - VERTIGO [None]
  - BACK PAIN [None]
  - VARICOSE VEIN [None]
  - HYPERTENSION [None]
  - LEFT ATRIAL DILATATION [None]
  - BLOOD PRESSURE INCREASED [None]
  - DEPRESSION [None]
  - CIRCULATORY COLLAPSE [None]
  - FALL [None]
  - CERVICOBRACHIAL SYNDROME [None]
  - MITRAL VALVE DISEASE [None]
  - BONE PAIN [None]
  - ATRIAL FIBRILLATION [None]
  - TACHYCARDIA [None]
  - WHITE BLOOD CELL COUNT INCREASED [None]
  - RED BLOOD CELL COUNT INCREASED [None]
  - VOMITING [None]
  - SCAR [None]
